FAERS Safety Report 21874524 (Version 3)
Quarter: 2023Q1

REPORT INFORMATION
  Report Type: Spontaneous
  Country: US (occurrence: None)
  Receive Date: 20230117
  Receipt Date: 20230228
  Transmission Date: 20230417
  Serious: Yes (Other)
  Sender: FDA-Public Use
  Company Number: 2023A004284

PATIENT
  Sex: Female
  Weight: 69.9 kg

DRUGS (3)
  1. EVUSHELD [Suspect]
     Active Substance: CILGAVIMAB\TIXAGEVIMAB
     Indication: COVID-19
     Dosage: 300.0MG ONCE/SINGLE ADMINISTRATION
     Route: 030
     Dates: start: 20210405
  2. PULMICORT FLEXHALER [Suspect]
     Active Substance: BUDESONIDE
     Indication: Asthma
     Route: 055
     Dates: start: 20210328
  3. IVERMECTIN [Concomitant]
     Active Substance: IVERMECTIN
     Dates: start: 202108

REACTIONS (7)
  - Papillary thyroid cancer [Unknown]
  - Asthma [Recovered/Resolved with Sequelae]
  - COVID-19 [Recovered/Resolved]
  - Nasal congestion [Recovered/Resolved with Sequelae]
  - Rash [Recovered/Resolved]
  - Autoimmune thyroiditis [Not Recovered/Not Resolved]
  - Migraine [Recovered/Resolved with Sequelae]
